FAERS Safety Report 6597180-9 (Version None)
Quarter: 2010Q1

REPORT INFORMATION
  Report Type: 
  Country: None (occurrence: None)
  Receive Date: 20100223
  Receipt Date: 20100217
  Transmission Date: 20100710
  Serious: Yes (Other)
  Sender: FDA-Public Use
  Company Number: AU-RB-002963-10

PATIENT
  Age: 61 Year
  Sex: Male

DRUGS (9)
  1. SUBUTEX [Suspect]
     Indication: DRUG USE FOR UNKNOWN INDICATION
     Route: 065
     Dates: start: 20100215
  2. SUBUTEX [Suspect]
     Route: 065
     Dates: start: 20100114, end: 20100114
  3. SUBUTEX [Suspect]
     Route: 065
     Dates: start: 20100115, end: 20100117
  4. SUBUTEX [Suspect]
     Route: 065
     Dates: start: 20100118, end: 20100120
  5. SUBUTEX [Suspect]
     Route: 065
     Dates: start: 20100203, end: 20100204
  6. SUBUTEX [Suspect]
     Route: 065
     Dates: start: 20100205, end: 20100207
  7. SUBUTEX [Suspect]
     Route: 065
     Dates: start: 20100208, end: 20100214
  8. SUBUTEX [Suspect]
     Dosage: TOOK 4 MG INITIALLY THEN 1 HOUR LATER TOOK 8 MG
     Route: 065
     Dates: start: 20100112, end: 20100112
  9. SUBUTEX [Suspect]
     Route: 065
     Dates: start: 20100113, end: 20100113

REACTIONS (11)
  - BACK PAIN [None]
  - CONSTIPATION [None]
  - COORDINATION ABNORMAL [None]
  - DREAMY STATE [None]
  - FATIGUE [None]
  - HALLUCINATION [None]
  - HEADACHE [None]
  - MIGRAINE [None]
  - NAUSEA [None]
  - OVERDOSE [None]
  - SOMNOLENCE [None]
